FAERS Safety Report 25887830 (Version 1)
Quarter: 2025Q4

REPORT INFORMATION
  Report Type: Spontaneous
  Country: US (occurrence: US)
  Receive Date: 20251007
  Receipt Date: 20251007
  Transmission Date: 20260118
  Serious: Yes (Other)
  Sender: ROCHE
  Company Number: US-ROCHE-10000402370

PATIENT
  Age: 20 Year
  Sex: Female
  Weight: 64.86 kg

DRUGS (7)
  1. XOLAIR [Suspect]
     Active Substance: OMALIZUMAB
     Indication: Idiopathic urticaria
     Route: 058
     Dates: start: 20250320
  2. XOLAIR [Suspect]
     Active Substance: OMALIZUMAB
     Indication: Angioedema
     Route: 058
     Dates: start: 20250904
  3. ALBUTEROL [Concomitant]
     Active Substance: ALBUTEROL
  4. FAMOTIDINE [Concomitant]
     Active Substance: FAMOTIDINE
     Route: 048
  5. BENADRYL [Concomitant]
     Active Substance: DIPHENHYDRAMINE HYDROCHLORIDE
     Route: 048
  6. PEPCID [Concomitant]
     Active Substance: FAMOTIDINE
     Route: 048
  7. MONTELUKAST [Concomitant]
     Active Substance: MONTELUKAST
     Dosage: ORALLY AT BEDTIME
     Route: 048

REACTIONS (8)
  - Headache [Recovered/Resolved]
  - Fatigue [Unknown]
  - Urticaria [Recovered/Resolved]
  - Anaphylactic reaction [Recovered/Resolved]
  - Hypoaesthesia [Recovered/Resolved]
  - Muscular weakness [Unknown]
  - Pharyngeal swelling [Recovered/Resolved]
  - Chest discomfort [Recovered/Resolved]

NARRATIVE: CASE EVENT DATE: 20250320
